FAERS Safety Report 19390244 (Version 1)
Quarter: 2021Q2

REPORT INFORMATION
  Report Type: Other
  Country: US (occurrence: US)
  Receive Date: 20210608
  Receipt Date: 20210608
  Transmission Date: 20210717
  Serious: Yes (Hospitalization)
  Sender: FDA-Public Use
  Company Number: US-ROCHE-2843916

PATIENT
  Sex: Male

DRUGS (1)
  1. XELODA [Suspect]
     Active Substance: CAPECITABINE
     Indication: SMALL INTESTINE CARCINOMA
     Dosage: TAKE 3 TABLET(S) BY MOUTH EVERY MORNING AND TAKE 4 TABLET(S) BY MOUTH EVERY EVENING FOR 14 DAYS THEN
     Route: 048

REACTIONS (2)
  - Gastric disorder [Unknown]
  - Off label use [Unknown]
